FAERS Safety Report 8828573 (Version 1)
Quarter: 2012Q4

REPORT INFORMATION
  Report Type: 
  Country: IT (occurrence: IT)
  Receive Date: 20121005
  Receipt Date: 20121005
  Transmission Date: 20130627
  Serious: Yes (Other)
  Sender: FDA-Public Use
  Company Number: IT-ROCHE-1115673

PATIENT

DRUGS (3)
  1. PEGASYS [Suspect]
     Indication: HEPATITIS C
     Dosage: for 48 weeks
     Route: 065
  2. COPEGUS [Suspect]
     Indication: HEPATITIS C
     Route: 065
  3. PEGINTERFERON ALFA-2B [Suspect]
     Indication: HEPATITIS C
     Dosage: 24 or 48 week period
     Route: 065

REACTIONS (6)
  - Anaemia [Unknown]
  - Neutropenia [Unknown]
  - Thrombocytopenia [Unknown]
  - Depression [Unknown]
  - Psychiatric symptom [Unknown]
  - Skin reaction [Unknown]
